FAERS Safety Report 18215110 (Version 2)
Quarter: 2020Q3

REPORT INFORMATION
  Report Type: Spontaneous
  Country: DE (occurrence: DE)
  Receive Date: 20200831
  Receipt Date: 20200904
  Transmission Date: 20201103
  Serious: Yes (Death, Life-Threatening)
  Sender: FDA-Public Use
  Company Number: DE-ABBVIE-20K-062-3547519-00

PATIENT
  Age: 73 Year
  Sex: Male
  Weight: 150 kg

DRUGS (6)
  1. ADRENALIN [Concomitant]
     Active Substance: EPINEPHRINE
     Indication: PRODUCT USED FOR UNKNOWN INDICATION
  2. SEVORANE [Suspect]
     Active Substance: SEVOFLURANE
     Indication: ANAESTHESIA PROCEDURE
     Dosage: 1.5 VOL% END?EXPIRATORY, WITH 1000ML FGF, QUIKFIL ADAPTER
     Route: 055
     Dates: start: 20200807, end: 20200807
  3. INSULIN [Concomitant]
     Active Substance: INSULIN NOS
     Indication: PRODUCT USED FOR UNKNOWN INDICATION
  4. FLUCLOXACILLIN [Concomitant]
     Active Substance: FLUCLOXACILLIN
     Indication: PRODUCT USED FOR UNKNOWN INDICATION
  5. NORADRENALINE [Concomitant]
     Active Substance: NOREPINEPHRINE
     Indication: PRODUCT USED FOR UNKNOWN INDICATION
  6. SUFENTANIL [Concomitant]
     Active Substance: SUFENTANIL
     Indication: PRODUCT USED FOR UNKNOWN INDICATION

REACTIONS (4)
  - Procedural haemorrhage [Fatal]
  - Sepsis [Fatal]
  - Cardiac operation [Fatal]
  - Hyperthermia malignant [Recovered/Resolved]

NARRATIVE: CASE EVENT DATE: 202008
